FAERS Safety Report 6678672-0 (Version None)
Quarter: 2010Q2

REPORT INFORMATION
  Report Type: 
  Country: None (occurrence: None)
  Receive Date: 20100413
  Receipt Date: 20100402
  Transmission Date: 20101027
  Serious: Yes (Other)
  Sender: FDA-Public Use
  Company Number: US-PFIZER INC-2010042317

PATIENT
  Sex: Male
  Weight: 88.435 kg

DRUGS (5)
  1. LIPITOR [Suspect]
     Dosage: UNK
  2. NIASPAN [Suspect]
     Indication: BLOOD CHOLESTEROL INCREASED
     Dosage: 500 MG, 1X/DAY
     Route: 065
     Dates: start: 20100201, end: 20100201
  3. ACETYLSALICYLIC ACID [Concomitant]
     Dosage: UNK
  4. CARVEDILOL [Concomitant]
     Dosage: UNK
  5. FUROSEMIDE [Concomitant]
     Dosage: UNK

REACTIONS (2)
  - MYOCARDIAL INFARCTION [None]
  - NERVE INJURY [None]
